FAERS Safety Report 17180200 (Version 2)
Quarter: 2024Q3

REPORT INFORMATION
  Report Type: Report from Study
  Country: US (occurrence: US)
  Receive Date: 20191220
  Receipt Date: 20240819
  Transmission Date: 20241016
  Serious: Yes (Disabling)
  Sender: SANOFI AVENTIS
  Company Number: US-SA-2019SA197491

PATIENT
  Age: 54 Year
  Sex: Female

DRUGS (2)
  1. AGALSIDASE BETA [Suspect]
     Active Substance: AGALSIDASE BETA
     Indication: Fabry^s disease
     Dosage: 60(UNITS NOT SPECIFIED) QOW
     Route: 041
     Dates: start: 20190619
  2. AGALSIDASE BETA [Suspect]
     Active Substance: AGALSIDASE BETA
     Dosage: 55 (UNITS NOT SPECIFIED) QOW
     Route: 058

REACTIONS (24)
  - Loss of personal independence in daily activities [Unknown]
  - Condition aggravated [Unknown]
  - Temperature intolerance [Unknown]
  - Migraine [Unknown]
  - Gastrooesophageal reflux disease [Unknown]
  - Haemorrhoids [Unknown]
  - Polyp [Unknown]
  - Presyncope [Unknown]
  - Anal incontinence [Unknown]
  - Head injury [Unknown]
  - Fall [Unknown]
  - Illness [Unknown]
  - Asthenia [Unknown]
  - Fatigue [Unknown]
  - Therapeutic response decreased [Unknown]
  - General physical health deterioration [Unknown]
  - Blood glucose increased [Unknown]
  - Brain fog [Unknown]
  - Headache [Recovered/Resolved]
  - Dizziness [Recovered/Resolved]
  - Dizziness [Unknown]
  - Pain in extremity [Unknown]
  - Condition aggravated [Unknown]
  - Pain [Unknown]

NARRATIVE: CASE EVENT DATE: 20190101
